FAERS Safety Report 8790311 (Version 1)
Quarter: 2012Q4

REPORT INFORMATION
  Report Type: 
  Country: AU (occurrence: AU)
  Receive Date: 20120917
  Receipt Date: 20120917
  Transmission Date: 20130627
  Serious: Yes (Death, Hospitalization)
  Sender: FDA-Public Use
  Company Number: AU-MYLANLABS-2012S1018376

PATIENT
  Age: 85 Year
  Sex: Female

DRUGS (2)
  1. VORICONAZOLE [Suspect]
     Route: 048
  2. SIMVASTATIN [Interacting]
     Dosage: 20 mg daily
     Route: 065

REACTIONS (3)
  - Drug interaction [Fatal]
  - Rhabdomyolysis [Fatal]
  - Respiratory failure [Fatal]
